FAERS Safety Report 6961750-6 (Version None)
Quarter: 2010Q3

REPORT INFORMATION
  Report Type: 
  Country: None (occurrence: None)
  Receive Date: 20100901
  Receipt Date: 20100824
  Transmission Date: 20110219
  Serious: Yes (Hospitalization)
  Sender: FDA-Public Use
  Company Number: PHHO2010DE10274

PATIENT
  Sex: Male
  Weight: 90 kg

DRUGS (2)
  1. CERTICAN [Suspect]
     Indication: RENAL TRANSPLANT
     Dosage: UNK
     Route: 048
     Dates: start: 20100420
  2. NEORAL [Suspect]
     Indication: RENAL TRANSPLANT
     Dosage: UNKNOWN
     Route: 048
     Dates: start: 20100420

REACTIONS (3)
  - BLOOD CREATININE INCREASED [None]
  - LYMPHOCELE [None]
  - OEDEMA PERIPHERAL [None]
